FAERS Safety Report 5378473-X (Version None)
Quarter: 2007Q3

REPORT INFORMATION
  Report Type: 
  Country: None (occurrence: None)
  Receive Date: 20070705
  Receipt Date: 20070626
  Transmission Date: 20080115
  Serious: Yes (Hospitalization)
  Sender: FDA-Public Use
  Company Number: US-AVENTIS-200712866GDDC

PATIENT
  Age: 56 Year
  Sex: Male
  Weight: 78 kg

DRUGS (2)
  1. DOCETAXEL [Suspect]
     Dosage: DOSE: 216 MG AS TOTAL DOSE ADMINISTERED THIS COURSE
     Route: 042
     Dates: start: 20060331, end: 20070316
  2. CODE UNBROKEN [Suspect]
     Dosage: DOSE: 6250 AS TOTAL DOSE ADMINISTERED THIS COURSE
     Route: 048
     Dates: start: 20070326, end: 20070326

REACTIONS (3)
  - DYSPNOEA [None]
  - PLEURAL EFFUSION [None]
  - PNEUMOTHORAX [None]
